FAERS Safety Report 9933287 (Version 2)
Quarter: 2014Q1

REPORT INFORMATION
  Report Type: Report from Study
  Country: US (occurrence: US)
  Receive Date: 20140228
  Receipt Date: 20140228
  Transmission Date: 20141002
  Serious: No
  Sender: FDA-Public Use
  Company Number: US-MYLANLABS-2013S1003430

PATIENT
  Age: 50 Year
  Sex: Male
  Weight: 83.92 kg

DRUGS (41)
  1. AMNESTEEM CAPSULES [Suspect]
     Indication: FOLLICULITIS
     Route: 048
     Dates: start: 20130116, end: 20130213
  2. AMNESTEEM CAPSULES [Suspect]
     Indication: OFF LABEL USE
     Route: 048
     Dates: start: 20130116, end: 20130213
  3. DIPHENHYDRAMINE [Concomitant]
     Dosage: AS NEEDED
     Route: 048
  4. CARVEDILOL [Concomitant]
     Route: 048
  5. TIZANIDINE [Concomitant]
     Dosage: AS NEEDED
     Route: 048
  6. NAPROXEN [Concomitant]
     Dosage: AS NEEDED WITH MEALS
     Route: 048
  7. HYDROXYZINE [Concomitant]
     Indication: PRURITUS
     Dosage: RASH
     Route: 048
  8. GENTAMICIN [Concomitant]
     Indication: RASH PUSTULAR
     Dosage: 0.1%APPLY ONE APPLICATION TO AFFECTED AREA TWICE DAILY
  9. ECONAZOLE [Concomitant]
     Dosage: 1%APPLY ONE APPLICATION TO AFFECTED AREA TWICE DAILY
  10. ZINC SULFATE [Concomitant]
  11. CEFUROXIME [Concomitant]
     Route: 048
  12. FUROSEMIDE [Concomitant]
     Route: 048
  13. OXYCODONE / ACETAMINOPHEN [Concomitant]
     Dosage: 5MG/325MG
     Route: 048
  14. CHOLECALCIFEROL [Concomitant]
     Dosage: 1,000 UNIT CAP
     Route: 048
  15. BENZOYL PEROXIDE [Concomitant]
     Dosage: 4% WASH FOR FACE AND BODY
  16. ERGOCALCIFEROL [Concomitant]
     Dosage: 50,000 UNIT CAPSULES ONE CAPSULE EVERY TUESDAY AND THURSDAY FOR 4 WEEKS
  17. DESONIDE [Concomitant]
     Dosage: 0.05% APPLY RO AFFECTED AREAS BEHIND EARS AND ON RT CHEST
  18. OMEPRAZOLE [Concomitant]
     Route: 048
  19. ERYTHROMYCIN [Concomitant]
     Dosage: APPLY TO AFFECTED AREAS BEHIND EARS AN ON RIGHT CHEST
  20. MORPHINE [Concomitant]
  21. IPRATROPIUM BROMIDE [Concomitant]
     Dosage: 0.06% USE 2 SPRAYS IN THE NOSE THREE TIMES DAILY FOR UP TO THREE WEEKS
     Route: 045
  22. CLOZEPAM [Concomitant]
     Dosage: AS NEEDED
     Route: 048
  23. FLUTICASONE [Concomitant]
     Dosage: 1 SPRAY IN EACH NOSTRIL ONCE DAILY DOSE UNIT:50 MICROGRAMS
     Route: 045
  24. FLUOXETINE [Concomitant]
     Route: 048
  25. DOCUSATE SODIUM [Concomitant]
     Route: 048
  26. PROMETHAZINE DM [Concomitant]
     Route: 048
  27. SIMVASTATIN [Concomitant]
     Route: 048
  28. POLYETHYLENE GLYCOL [Concomitant]
     Dosage: TAKE ONE PACKET BY MOUTH
     Route: 048
  29. LIDOCAINE [Concomitant]
     Dosage: 5% APPLY (2) PATCHES
     Route: 061
  30. VENLAFAXINE XR [Concomitant]
     Route: 048
  31. FLUOCINONIDE [Concomitant]
     Dosage: SCALP AND BUTTOCKS AS NEEDED FOR ITCHY BUMPS
     Route: 061
  32. VENTOLIN [Concomitant]
     Dosage: 90 GRAMS AS INSTRUCTED DOSE UNIT:90 MICROGRAMS
     Route: 055
  33. BACLOPHEN [Concomitant]
     Route: 048
  34. LEVETIRACETAM [Concomitant]
     Route: 048
  35. MULTIVITAMIN [Concomitant]
     Route: 048
  36. TOPIRAMATE [Concomitant]
     Route: 048
  37. CYCLOBENZAPRIN HCL [Concomitant]
     Route: 048
  38. FENTANYL [Concomitant]
     Dosage: IN NS (PF) 10MXG/ML PUMP RESERVOIR PUMP PREFILLED VIA PUMP
  39. MAGNESIUM CITRATE [Concomitant]
     Route: 048
  40. BACLOPHEN [Concomitant]
     Dosage: 50MCG/ML VIA PUMP
     Route: 037
  41. ASTRINGENT SOLUTION [Concomitant]
     Dosage: DR. STECK^S USE ONCE OR TWICE DAILY AFTER CLENSING

REACTIONS (4)
  - Tinnitus [Not Recovered/Not Resolved]
  - Hyperacusis [Recovered/Resolved]
  - Magical thinking [Recovered/Resolved]
  - Headache [Recovered/Resolved]
